FAERS Safety Report 6391182-3 (Version None)
Quarter: 2009Q4

REPORT INFORMATION
  Report Type: 
  Country: None (occurrence: None)
  Receive Date: 20091006
  Receipt Date: 20091006
  Transmission Date: 20100525
  Serious: Yes (Other)
  Sender: FDA-Public Use
  Company Number: None

PATIENT
  Age: 55 Year
  Sex: Female
  Weight: 70.3075 kg

DRUGS (2)
  1. AMITIZA [Suspect]
     Indication: CONSTIPATION
     Dosage: 8 MCG 2X DAILY PO
     Route: 048
     Dates: start: 20091002, end: 20091003
  2. AMITIZA [Suspect]
     Indication: IRRITABLE BOWEL SYNDROME
     Dosage: 8 MCG 2X DAILY PO
     Route: 048
     Dates: start: 20091002, end: 20091003

REACTIONS (6)
  - ABDOMINAL DISTENSION [None]
  - CHEST DISCOMFORT [None]
  - GASTROINTESTINAL DISORDER [None]
  - HEADACHE [None]
  - LUNG DISORDER [None]
  - RESPIRATORY DISORDER [None]
